FAERS Safety Report 8530667-8 (Version None)
Quarter: 2012Q3

REPORT INFORMATION
  Report Type: 
  Country: None (occurrence: None)
  Receive Date: 20120723
  Receipt Date: 20120716
  Transmission Date: 20120928
  Serious: Yes (Disabling, Other)
  Sender: FDA-Public Use
  Company Number: US-ROCHE-1084635

PATIENT
  Sex: Female

DRUGS (5)
  1. FOSAMAX [Suspect]
     Indication: OSTEOPOROSIS
     Dates: start: 20120101, end: 20120301
  2. BONIVA [Suspect]
     Indication: OSTEOPOROSIS
     Route: 048
     Dates: start: 20100901, end: 20101101
  3. CALCIUM [Concomitant]
  4. ACTONEL [Suspect]
     Indication: OSTEOPOROSIS
     Dates: start: 20100401, end: 20100501
  5. VITAMIN D [Concomitant]

REACTIONS (2)
  - FALL [None]
  - FEMUR FRACTURE [None]
